FAERS Safety Report 17530474 (Version 1)
Quarter: 2020Q1

REPORT INFORMATION
  Report Type: Spontaneous
  Country: GB (occurrence: GB)
  Receive Date: 20200312
  Receipt Date: 20200312
  Transmission Date: 20200409
  Serious: Yes (Other)
  Sender: FDA-Public Use
  Company Number: GB-TEVA-2020-GB-1197260

PATIENT
  Age: 64 Year
  Sex: Male
  Weight: 74 kg

DRUGS (3)
  1. RAMIPRIL. [Concomitant]
     Active Substance: RAMIPRIL
     Dosage: 1 DF
     Dates: start: 20191105
  2. ATORVASTATIN [Suspect]
     Active Substance: ATORVASTATIN
     Dosage: 20 MILLIGRAM DAILY;
     Dates: start: 20191105, end: 20200123
  3. LANSOPRAZOLE. [Concomitant]
     Active Substance: LANSOPRAZOLE
     Dosage: ON AN EMPTY STOMACH, 1 DF
     Dates: start: 20200123

REACTIONS (3)
  - Dermatitis allergic [Recovering/Resolving]
  - Lip blister [Unknown]
  - Myalgia [Unknown]

NARRATIVE: CASE EVENT DATE: 20200123
